FAERS Safety Report 22199878 (Version 2)
Quarter: 2023Q2

REPORT INFORMATION
  Report Type: Report from Study
  Country: US (occurrence: US)
  Receive Date: 20230412
  Receipt Date: 20230413
  Transmission Date: 20230721
  Serious: Yes (Other)
  Sender: FDA-Public Use
  Company Number: US-ABBVIE-4722648

PATIENT
  Age: 45 Year
  Sex: Female

DRUGS (1)
  1. HUMIRA [Suspect]
     Active Substance: ADALIMUMAB
     Indication: Rheumatoid arthritis
     Dosage: CITRATE FREE
     Route: 058
     Dates: start: 20220706

REACTIONS (6)
  - Incision site haemorrhage [Unknown]
  - Scar [Unknown]
  - Postoperative wound infection [Not Recovered/Not Resolved]
  - Incision site erythema [Unknown]
  - Purulent discharge [Unknown]
  - Incision site swelling [Unknown]

NARRATIVE: CASE EVENT DATE: 20220901
